FAERS Safety Report 4301018-X (Version None)
Quarter: 2004Q1

REPORT INFORMATION
  Report Type: 
  Country: None (occurrence: None)
  Receive Date: 20040219
  Receipt Date: 20040204
  Transmission Date: 20041129
  Serious: Yes (Hospitalization)
  Sender: FDA-Public Use
  Company Number: 2004IM000211

PATIENT
  Age: 49 Year
  Sex: Female

DRUGS (6)
  1. ADVAFERON (A643_INTERFERON ALFACON-1) [Suspect]
     Indication: HEPATITIS C
     Dosage: 18 MU; QD; SUBCUTANEOUS
     Route: 058
     Dates: start: 20020417, end: 20020425
  2. BERIZYM [Concomitant]
  3. TEPRENONE [Concomitant]
  4. LOXOPROFEN SODIUM [Concomitant]
  5. MAGNESIUM OXIDE [Concomitant]
  6. SENNA LEAF [Concomitant]

REACTIONS (4)
  - MELAENA [None]
  - MENOMETRORRHAGIA [None]
  - PYREXIA [None]
  - WHITE BLOOD CELL COUNT DECREASED [None]
